FAERS Safety Report 5045161-9 (Version None)
Quarter: 2006Q3

REPORT INFORMATION
  Report Type: 
  Country: None (occurrence: None)
  Receive Date: 20060705
  Receipt Date: 20060613
  Transmission Date: 20061208
  Serious: Yes (Hospitalization)
  Sender: FDA-Public Use
  Company Number: US200606003199

PATIENT
  Age: 50 Year
  Sex: Male

DRUGS (3)
  1. HUMATROPE [Suspect]
     Indication: PITUITARY TUMOUR REMOVAL
     Dosage: 0.3 MG
     Dates: start: 20050101
  2. HUMATROPEN [Concomitant]
  3. STEROID ANTIBACTERIALS [Concomitant]

REACTIONS (2)
  - ARTHROPATHY [None]
  - PHARMACEUTICAL PRODUCT COMPLAINT [None]
